FAERS Safety Report 7816993-6 (Version None)
Quarter: 2011Q4

REPORT INFORMATION
  Report Type: 
  Country: None (occurrence: None)
  Receive Date: 20111017
  Receipt Date: 20111012
  Transmission Date: 20120403
  Serious: Yes (Life-Threatening, Other)
  Sender: FDA-Public Use
  Company Number: US-ELI_LILLY_AND_COMPANY-US201110003256

PATIENT
  Age: 71 Year
  Sex: Male
  Weight: 95.238 kg

DRUGS (1)
  1. EFFIENT [Suspect]
     Indication: STENT PLACEMENT
     Dosage: 10 MG, QD
     Dates: start: 20110407, end: 20110409

REACTIONS (2)
  - THROMBOSIS [None]
  - HAEMORRHAGE [None]
